FAERS Safety Report 22948201 (Version 2)
Quarter: 2023Q4

REPORT INFORMATION
  Report Type: Spontaneous
  Country: CO (occurrence: CO)
  Receive Date: 20230915
  Receipt Date: 20231114
  Transmission Date: 20240110
  Serious: Yes (Other)
  Sender: FDA-Public Use
  Company Number: CO-SA-SAC20230914000618

PATIENT
  Age: 43 Year
  Sex: Female
  Weight: 60 kg

DRUGS (1)
  1. DUPIXENT [Suspect]
     Active Substance: DUPILUMAB
     Indication: Asthma
     Dosage: 200 MG, QOW
     Route: 058
     Dates: start: 20220125

REACTIONS (5)
  - Blindness [Unknown]
  - Cataract [Unknown]
  - Vision blurred [Unknown]
  - Dry eye [Unknown]
  - Weight increased [Unknown]

NARRATIVE: CASE EVENT DATE: 20220501
